FAERS Safety Report 17458933 (Version 1)
Quarter: 2020Q1

REPORT INFORMATION
  Report Type: Spontaneous
  Country: US (occurrence: US)
  Receive Date: 20200225
  Receipt Date: 20200225
  Transmission Date: 20200409
  Serious: Yes (Other)
  Sender: FDA-Public Use
  Company Number: US-IGSA-SR10009193

PATIENT
  Age: 39 Year
  Sex: Female
  Weight: 77.6 kg

DRUGS (1)
  1. PROLASTIN-C LIQUID [Suspect]
     Active Substance: .ALPHA.1-PROTEINASE INHIBITOR HUMAN
     Indication: PRODUCT USED FOR UNKNOWN INDICATION
     Dosage: 70 ML, UNK
     Route: 042
     Dates: start: 20190913, end: 20190913

REACTIONS (4)
  - Chest discomfort [Recovered/Resolved]
  - Dysphagia [Recovered/Resolved]
  - Urticaria [Recovered/Resolved]
  - Flushing [Recovered/Resolved]

NARRATIVE: CASE EVENT DATE: 20190913
